FAERS Safety Report 5312172-5 (Version None)
Quarter: 2007Q2

REPORT INFORMATION
  Report Type: 
  Country: None (occurrence: None)
  Receive Date: 20070430
  Receipt Date: 20060922
  Transmission Date: 20071010
  Serious: No
  Sender: FDA-Public Use
  Company Number: 2006UW15347

PATIENT
  Age: 75 Year
  Sex: Male
  Weight: 83.9 kg

DRUGS (9)
  1. NEXIUM [Suspect]
     Indication: GASTROOESOPHAGEAL REFLUX DISEASE
     Route: 048
     Dates: start: 20060701
  2. METFORMIN HCL [Concomitant]
  3. ZANTAC [Concomitant]
  4. PLAVIX [Concomitant]
  5. METOPROLOL SUCCINATE [Concomitant]
  6. DILTIAZEM [Concomitant]
  7. LANSOPRAZOLE [Concomitant]
  8. LISINOPRIL [Concomitant]
  9. SIMVASTATIN [Concomitant]

REACTIONS (5)
  - CHEST PAIN [None]
  - DRUG INEFFECTIVE [None]
  - GINGIVAL PAIN [None]
  - JOINT CREPITATION [None]
  - TOOTHACHE [None]
